FAERS Safety Report 17422623 (Version 10)
Quarter: 2021Q2

REPORT INFORMATION
  Report Type: Report from Study
  Country: US (occurrence: US)
  Receive Date: 20200215
  Receipt Date: 20210617
  Transmission Date: 20210716
  Serious: Yes (Other)
  Sender: FDA-Public Use
  Company Number: NVSC2020US041171

PATIENT
  Age: 72 Year
  Sex: Female

DRUGS (3)
  1. GILENYA [Suspect]
     Active Substance: FINGOLIMOD HYDROCHLORIDE
     Indication: RELAPSING-REMITTING MULTIPLE SCLEROSIS
     Dosage: 0.5 MG, QD
     Route: 048
     Dates: start: 20200207
  2. GILENYA [Suspect]
     Active Substance: FINGOLIMOD HYDROCHLORIDE
     Indication: MULTIPLE SCLEROSIS
     Dosage: 0.5 MG, QD
     Route: 048
  3. GILENYA [Suspect]
     Active Substance: FINGOLIMOD HYDROCHLORIDE
     Dosage: 0.5 MG, QD
     Route: 048

REACTIONS (18)
  - Anxiety [Unknown]
  - Balance disorder [Unknown]
  - Eating disorder [Unknown]
  - Depressed mood [Unknown]
  - Malaise [Unknown]
  - Clavicle fracture [Unknown]
  - Fall [Unknown]
  - Fatigue [Unknown]
  - Product dose omission issue [Unknown]
  - Asthenia [Unknown]
  - Renal cyst [Unknown]
  - Constipation [Unknown]
  - Mobility decreased [Unknown]
  - Hepatic enzyme increased [Unknown]
  - Hip fracture [Unknown]
  - Visual impairment [Unknown]
  - Tremor [Unknown]
  - Head injury [Unknown]

NARRATIVE: CASE EVENT DATE: 20201007
